FAERS Safety Report 4484173-0 (Version None)
Quarter: 2004Q4

REPORT INFORMATION
  Report Type: 
  Country: None (occurrence: None)
  Receive Date: 20041025
  Receipt Date: 20041014
  Transmission Date: 20050328
  Serious: Yes (Hospitalization)
  Sender: FDA-Public Use
  Company Number: US-MERCK-0410USA02254

PATIENT
  Age: 41 Year
  Sex: Female

DRUGS (3)
  1. VIOXX [Suspect]
     Indication: ARTHRITIS
     Route: 048
     Dates: start: 20020101, end: 20030101
  2. VIOXX [Suspect]
     Indication: JOINT INJURY
     Route: 048
     Dates: start: 20020101, end: 20030101
  3. ULTRACET [Concomitant]
     Route: 065

REACTIONS (9)
  - BLINDNESS [None]
  - CONVULSION [None]
  - FALL [None]
  - HEADACHE [None]
  - HEPATIC ENZYME INCREASED [None]
  - INTERVERTEBRAL DISC PROTRUSION [None]
  - PARALYSIS [None]
  - RENAL IMPAIRMENT [None]
  - RETINAL HAEMORRHAGE [None]
